FAERS Safety Report 8419249-6 (Version None)
Quarter: 2012Q2

REPORT INFORMATION
  Report Type: 
  Country: None (occurrence: None)
  Receive Date: 20120601
  Receipt Date: 20120518
  Transmission Date: 20120825
  Serious: Yes (Other)
  Sender: FDA-Public Use
  Company Number: 2012ST000469

PATIENT
  Age: 70 Year
  Sex: Male

DRUGS (1)
  1. MATULANE [Suspect]
     Indication: LYMPHOMA
     Dosage: 50 MG; BID; PO
     Route: 048
     Dates: start: 20120504

REACTIONS (1)
  - RENAL FAILURE [None]
